FAERS Safety Report 15329996 (Version 1)
Quarter: 2018Q3

REPORT INFORMATION
  Report Type: Spontaneous
  Country: CZ (occurrence: CZ)
  Receive Date: 20180829
  Receipt Date: 20180829
  Transmission Date: 20181010
  Serious: Yes (Life-Threatening, Hospitalization, Disabling, Other)
  Sender: FDA-Public Use
  Company Number: PHHY2018CZ082646

PATIENT
  Age: 71 Year
  Sex: Male
  Weight: 68 kg

DRUGS (2)
  1. ZARZIO [Concomitant]
     Active Substance: FILGRASTIM
     Indication: LEUKOPENIA
     Dosage: ADMINISTERED IN THE PAST AND HE DID NOT HAVE ANY ADVERSE REACTION.
     Route: 051
  2. DOCETAXEL. [Suspect]
     Active Substance: DOCETAXEL
     Indication: PROSTATE CANCER
     Route: 051
     Dates: start: 20180302, end: 20180615

REACTIONS (3)
  - Phlebitis superficial [Recovering/Resolving]
  - Dermatitis bullous [Recovering/Resolving]
  - Nodular rash [Recovering/Resolving]

NARRATIVE: CASE EVENT DATE: 20180622
